FAERS Safety Report 24106254 (Version 1)
Quarter: 2024Q3

REPORT INFORMATION
  Report Type: Spontaneous
  Country: DE (occurrence: DE)
  Receive Date: 20240717
  Receipt Date: 20240717
  Transmission Date: 20241017
  Serious: Yes (Hospitalization, Other)
  Sender: MYLAN
  Company Number: DE-KRKA-DE2024K10562SPO

PATIENT
  Age: 84 Year
  Sex: Female

DRUGS (9)
  1. TORSEMIDE [Suspect]
     Active Substance: TORSEMIDE
     Indication: Oedema peripheral
     Dosage: 5 MILLIGRAM, QD (1X PER DAY IN THE MORNING)
     Route: 048
     Dates: start: 20230605, end: 20240610
  2. TORSEMIDE [Suspect]
     Active Substance: TORSEMIDE
     Indication: Pulmonary oedema
     Dosage: 5 MILLIGRAM, BID (2X PER DAY (ONCE IN THE MORNING AND ONCE IN THE NOON)
     Route: 048
     Dates: start: 20240611
  3. TORSEMIDE [Suspect]
     Active Substance: TORSEMIDE
     Indication: Blood pressure increased
  4. TRAMADOL [Suspect]
     Active Substance: TRAMADOL\TRAMADOL HYDROCHLORIDE
     Indication: Product used for unknown indication
     Dosage: UNK
     Route: 065
     Dates: end: 20240611
  5. CANDESARTAN CILEXETIL [Suspect]
     Active Substance: CANDESARTAN CILEXETIL
     Indication: Hypertension
     Dosage: 8 MILLIGRAM, QD (1X PER DAY IN THE MORNIMG)
     Route: 048
     Dates: start: 20240611
  6. CANDESARTAN CILEXETIL\HYDROCHLOROTHIAZIDE [Suspect]
     Active Substance: CANDESARTAN CILEXETIL\HYDROCHLOROTHIAZIDE
     Indication: Hypertension
     Dosage: 1 DOSAGE FORM, QD (1 TABLET (16/12.5 MG/MG), 1X PER DAY IN THE MORNING)
     Route: 048
     Dates: start: 20230605
  7. CANDESARTAN CILEXETIL\HYDROCHLOROTHIAZIDE [Suspect]
     Active Substance: CANDESARTAN CILEXETIL\HYDROCHLOROTHIAZIDE
     Indication: Oedema peripheral
  8. CANDESARTAN CILEXETIL\HYDROCHLOROTHIAZIDE [Suspect]
     Active Substance: CANDESARTAN CILEXETIL\HYDROCHLOROTHIAZIDE
     Indication: Pulmonary oedema
  9. MOMETASONE FUROATE [Suspect]
     Active Substance: MOMETASONE FUROATE
     Indication: Inflammation
     Dosage: UNK
     Route: 061
     Dates: start: 20240611

REACTIONS (10)
  - Neoplasm [Recovered/Resolved]
  - Pulmonary oedema [Not Recovered/Not Resolved]
  - Dysphagia [Not Recovered/Not Resolved]
  - Oral pain [Not Recovered/Not Resolved]
  - Inflammation [Not Recovered/Not Resolved]
  - Blood pressure increased [Unknown]
  - Oedema peripheral [Not Recovered/Not Resolved]
  - Limb discomfort [Not Recovered/Not Resolved]
  - Asthenia [Not Recovered/Not Resolved]
  - Drug ineffective [Not Recovered/Not Resolved]

NARRATIVE: CASE EVENT DATE: 20240601
